FAERS Safety Report 14680114 (Version 1)
Quarter: 2018Q1

REPORT INFORMATION
  Report Type: Report from Study
  Country: CA (occurrence: CA)
  Receive Date: 20180326
  Receipt Date: 20180326
  Transmission Date: 20180509
  Serious: No
  Sender: FDA-Public Use
  Company Number: CA-JNJFOC-20180316897

PATIENT
  Age: 73 Year
  Sex: Male
  Weight: 66 kg

DRUGS (1)
  1. STELARA [Suspect]
     Active Substance: USTEKINUMAB
     Indication: CROHN^S DISEASE
     Dosage: STRENGTH = 90 MG
     Route: 058
     Dates: start: 20171122

REACTIONS (2)
  - Nasopharyngitis [Recovering/Resolving]
  - Prostatic specific antigen increased [Unknown]

NARRATIVE: CASE EVENT DATE: 201803
